FAERS Safety Report 5797101-2 (Version None)
Quarter: 2008Q3

REPORT INFORMATION
  Report Type: 
  Country: None (occurrence: None)
  Receive Date: 20080701
  Receipt Date: 20080623
  Transmission Date: 20090109
  Serious: Yes (Other)
  Sender: FDA-Public Use
  Company Number: JP-ASTRAZENECA-2008AP04308

PATIENT
  Age: 26058 Day
  Sex: Female

DRUGS (8)
  1. IRESSA [Suspect]
     Indication: NON-SMALL CELL LUNG CANCER
     Route: 048
     Dates: start: 20080409, end: 20080531
  2. OXYCONTIN [Concomitant]
     Indication: PAIN
     Route: 048
     Dates: start: 20080402, end: 20080524
  3. LOXONIN [Concomitant]
     Indication: PAIN
     Route: 048
     Dates: start: 20080402
  4. MUCOSTA [Concomitant]
     Indication: PROPHYLAXIS AGAINST GASTROINTESTINAL ULCER
     Route: 048
     Dates: start: 20080402
  5. MAGLAX [Concomitant]
     Indication: CONSTIPATION PROPHYLAXIS
     Route: 048
     Dates: start: 20080402, end: 20080531
  6. NOVAMIN [Concomitant]
     Indication: NAUSEA
     Route: 048
     Dates: start: 20080402, end: 20080531
  7. COROHERSER [Concomitant]
     Indication: ANGINA PECTORIS
     Route: 048
  8. LENDORMIN D [Concomitant]
     Indication: INSOMNIA
     Route: 048
     Dates: end: 20080614

REACTIONS (1)
  - LIVER DISORDER [None]
